FAERS Safety Report 12278646 (Version 2)
Quarter: 2016Q2

REPORT INFORMATION
  Report Type: Spontaneous
  Country: US (occurrence: US)
  Receive Date: 20160418
  Receipt Date: 20160509
  Transmission Date: 20160815
  Serious: No
  Sender: FDA-Public Use
  Company Number: US-PFIZER INC-2016196209

PATIENT
  Age: 49 Year
  Sex: Male
  Weight: 98 kg

DRUGS (1)
  1. VIAGRA [Suspect]
     Active Substance: SILDENAFIL CITRATE
     Dosage: 1 DF, DAILY
     Route: 048

REACTIONS (1)
  - Erection increased [Not Recovered/Not Resolved]

NARRATIVE: CASE EVENT DATE: 20160310
